FAERS Safety Report 5088086-5 (Version None)
Quarter: 2006Q3

REPORT INFORMATION
  Report Type: 
  Country: None (occurrence: None)
  Receive Date: 20060821
  Receipt Date: 20060809
  Transmission Date: 20061208
  Serious: Yes (Hospitalization)
  Sender: FDA-Public Use
  Company Number: 2006095553

PATIENT
  Age: 74 Year
  Sex: Female
  Weight: 49.8957 kg

DRUGS (5)
  1. SUTENT [Suspect]
     Indication: BREAST CANCER
     Dosage: 25 MG (25 MG, 1 IN 1 D), ORAL
     Route: 048
     Dates: start: 20060728
  2. PACLITAXEL [Suspect]
     Indication: BREAST CANCER
     Dosage: 140 MG (140 MG, FREQUENCY: 1 DOSE-INTERVAL: WEEKLY X
     Dates: start: 20060727
  3. PRAVACHOL [Concomitant]
  4. PREVACID [Concomitant]
  5. ULTRAM [Concomitant]

REACTIONS (3)
  - HERPES ZOSTER [None]
  - NAUSEA [None]
  - VOMITING [None]
